FAERS Safety Report 7775326-4 (Version None)
Quarter: 2011Q3

REPORT INFORMATION
  Report Type: 
  Country: None (occurrence: None)
  Receive Date: 20110921
  Receipt Date: 20110915
  Transmission Date: 20111222
  Serious: Yes (Hospitalization)
  Sender: FDA-Public Use
  Company Number: 1000023899

PATIENT
  Age: 78 Year
  Sex: Female

DRUGS (1)
  1. DALIRESP [Suspect]
     Indication: CHRONIC OBSTRUCTIVE PULMONARY DISEASE
     Dosage: 500 MCG (500 MCG, 1 IN 1 D) ORAL
     Route: 048
     Dates: start: 20110913, end: 20110914

REACTIONS (1)
  - HALLUCINATION, VISUAL [None]
